FAERS Safety Report 7644385-1 (Version None)
Quarter: 2011Q3

REPORT INFORMATION
  Report Type: 
  Country: None (occurrence: None)
  Receive Date: 20110728
  Receipt Date: 20110728
  Transmission Date: 20111222
  Serious: No
  Sender: FDA-Public Use
  Company Number: None

PATIENT
  Age: 5 Year
  Sex: Male
  Weight: 18.1439 kg

DRUGS (2)
  1. SINGULAIR [Suspect]
     Indication: RHINITIS ALLERGIC
     Dosage: ONE TABLET PO HS
     Route: 048
  2. SINGULAIR [Suspect]
     Indication: ASTHMA
     Dosage: ONE TABLET PO HS
     Route: 048

REACTIONS (2)
  - TIC [None]
  - CONDITION AGGRAVATED [None]
